FAERS Safety Report 18360491 (Version 1)
Quarter: 2020Q4

REPORT INFORMATION
  Report Type: Spontaneous
  Country: US (occurrence: US)
  Receive Date: 20201008
  Receipt Date: 20201008
  Transmission Date: 20210114
  Serious: No
  Sender: FDA-Public Use
  Company Number: US-INDIVIOR US-INDV-124423-2020

PATIENT
  Age: 27 Year
  Sex: Female

DRUGS (5)
  1. BUPRENORPHINE/NALOXONE 2 MG FILM [Suspect]
     Active Substance: BUPRENORPHINE\NALOXONE
     Indication: DRUG WITHDRAWAL SYNDROME
     Dosage: 2MG, UNK
     Route: 060
  2. MELATONIN                          /07129401/ [Concomitant]
     Active Substance: CALCIUM\IRON\MELATONIN\PYRIDOXINE HYDROCHLORIDE
     Indication: INSOMNIA
     Dosage: UNK
     Route: 065
  3. BUPRENORPHINE/NALOXONE 8 MG FILM [Suspect]
     Active Substance: BUPRENORPHINE\NALOXONE
     Indication: DRUG WITHDRAWAL SYNDROME
     Dosage: 8MG, UNK
     Route: 060
  4. HYDROXYZINE                        /00058402/ [Concomitant]
     Active Substance: HYDROXYZINE HYDROCHLORIDE
     Indication: INSOMNIA
     Dosage: UNK
     Route: 065
  5. CLONIDINE. [Concomitant]
     Active Substance: CLONIDINE
     Indication: PRODUCT USED FOR UNKNOWN INDICATION
     Dosage: 1 DOSE OF 0.2 MILLIGRAM
     Route: 065

REACTIONS (2)
  - Product use issue [Unknown]
  - Off label use [Unknown]
